FAERS Safety Report 6381024-4 (Version None)
Quarter: 2009Q3

REPORT INFORMATION
  Report Type: 
  Country: None (occurrence: None)
  Receive Date: 20090929
  Receipt Date: 20090924
  Transmission Date: 20100115
  Serious: Yes (Other)
  Sender: FDA-Public Use
  Company Number: US-MERCK-0909USA02130

PATIENT
  Age: 7 Year
  Sex: Female

DRUGS (3)
  1. SINGULAIR [Suspect]
     Indication: ASTHMA
     Route: 048
     Dates: start: 20090807, end: 20090902
  2. SINGULAIR [Suspect]
     Route: 048
     Dates: start: 20061201, end: 20070807
  3. ADVAIR DISKUS 100/50 [Concomitant]
     Route: 065

REACTIONS (3)
  - AGGRESSION [None]
  - SUICIDAL IDEATION [None]
  - THINKING ABNORMAL [None]
